FAERS Safety Report 4627127-3 (Version None)
Quarter: 2005Q1

REPORT INFORMATION
  Report Type: 
  Country: None (occurrence: None)
  Receive Date: 20050331
  Receipt Date: 20050318
  Transmission Date: 20050727
  Serious: Yes (Hospitalization)
  Sender: FDA-Public Use
  Company Number: 2005047310

PATIENT
  Age: 68 Year
  Sex: Female
  Weight: 107.9561 kg

DRUGS (6)
  1. DETROL LA [Suspect]
     Indication: HYPERTONIC BLADDER
     Dosage: 4 MG (4 MG, 1 IN 1 D), ORAL
     Route: 048
     Dates: start: 20030201, end: 20040201
  2. LEVOTHYROXINE SODIUM [Concomitant]
  3. ATENOLOL [Concomitant]
  4. CONJUGATED ESTROGENS [Concomitant]
  5. PRINZIDE (HYDROCHLOROTHAZIDE, LISINOPRIL) [Concomitant]
  6. ACIPHEX [Concomitant]

REACTIONS (9)
  - BLADDER DISORDER [None]
  - DISEASE RECURRENCE [None]
  - GASTROOESOPHAGEAL REFLUX DISEASE [None]
  - HAEMORRHAGE [None]
  - HOT FLUSH [None]
  - HYPERTONIC BLADDER [None]
  - POST PROCEDURAL HAEMORRHAGE [None]
  - URETHRAL DISORDER [None]
  - VAGINAL HAEMORRHAGE [None]
